FAERS Safety Report 6828950-7 (Version None)
Quarter: 2010Q3

REPORT INFORMATION
  Report Type: 
  Country: None (occurrence: None)
  Receive Date: 20100709
  Receipt Date: 20070223
  Transmission Date: 20110219
  Serious: Yes (Other)
  Sender: FDA-Public Use
  Company Number: US-PFIZER INC-2007014815

PATIENT
  Sex: Male
  Weight: 89.4 kg

DRUGS (3)
  1. CHANTIX [Interacting]
     Indication: SMOKING CESSATION THERAPY
     Dates: start: 20061212
  2. LISINOPRIL AND HYDROCHLOROTHIAZIDE [Interacting]
     Indication: BLOOD PRESSURE
     Dosage: 10 MG/12.5MG
  3. ZOCOR [Suspect]
     Indication: BLOOD CHOLESTEROL
     Dates: start: 20060101, end: 20061201

REACTIONS (5)
  - BLOOD CHOLESTEROL DECREASED [None]
  - DEHYDRATION [None]
  - DRUG INTERACTION [None]
  - MYALGIA [None]
  - PAIN [None]
